FAERS Safety Report 5356857-3 (Version None)
Quarter: 2007Q2

REPORT INFORMATION
  Report Type: 
  Country: None (occurrence: None)
  Receive Date: 20070614
  Receipt Date: 20070205
  Transmission Date: 20071010
  Serious: No
  Sender: FDA-Public Use
  Company Number: US-ASTRAZENECA-2007UW02409

PATIENT
  Age: 76 Year
  Sex: Female
  Weight: 63.5 kg

DRUGS (8)
  1. ATACAND [Suspect]
     Indication: HYPERTENSION
     Route: 048
  2. METHYLDOPA [Concomitant]
  3. ATENOLOL [Concomitant]
  4. NIFEDIPINE [Concomitant]
  5. HYDROCHLOROTHIAZIDE [Concomitant]
  6. FLECINIDE [Concomitant]
  7. POTASSIUM ACETATE [Concomitant]
  8. WARFARIN SODIUM [Concomitant]

REACTIONS (1)
  - INTERNATIONAL NORMALISED RATIO DECREASED [None]
